FAERS Safety Report 12142742 (Version 2)
Quarter: 2016Q1

REPORT INFORMATION
  Report Type: Report from Study
  Country: BR (occurrence: BR)
  Receive Date: 20160303
  Receipt Date: 20160316
  Transmission Date: 20160526
  Serious: Yes (Other)
  Sender: FDA-Public Use
  Company Number: PHHY2016BR028687

PATIENT
  Sex: Female
  Weight: 51 kg

DRUGS (5)
  1. LAMIVUDINA [Concomitant]
     Active Substance: LAMIVUDINE
     Indication: HIV INFECTION
     Dosage: 5 DF, QD
     Route: 048
  2. GLIVEC [Suspect]
     Active Substance: IMATINIB MESYLATE
     Indication: CHRONIC MYELOID LEUKAEMIA
     Dosage: 400 MG, QD (1 TABLET A DAY)
     Route: 048
     Dates: start: 2005, end: 2007
  3. GLIVEC [Suspect]
     Active Substance: IMATINIB MESYLATE
     Dosage: 400 MG, UNK
     Route: 048
     Dates: end: 2015
  4. TENOFOVIR [Concomitant]
     Active Substance: TENOFOVIR
     Indication: HIV INFECTION
     Dosage: 5 DF, QD
     Route: 048
  5. KALETRA [Concomitant]
     Active Substance: LOPINAVIR\RITONAVIR
     Indication: HIV INFECTION
     Dosage: 4 DF, QD
     Route: 048

REACTIONS (9)
  - Malaise [Not Recovered/Not Resolved]
  - Vomiting [Not Recovered/Not Resolved]
  - Agitation [Unknown]
  - Maternal exposure during pregnancy [Unknown]
  - Nausea [Not Recovered/Not Resolved]
  - Chronic myeloid leukaemia [Unknown]
  - Self-induced vomiting [Unknown]
  - Malignant neoplasm progression [Unknown]
  - No therapeutic response [Unknown]
